FAERS Safety Report 21704323 (Version 1)
Quarter: 2022Q4

REPORT INFORMATION
  Report Type: Spontaneous
  Country: US (occurrence: None)
  Receive Date: 20221207
  Receipt Date: 20221207
  Transmission Date: 20230113
  Serious: Yes (Other)
  Sender: FDA-Public Use
  Company Number: None

PATIENT
  Sex: Female

DRUGS (3)
  1. VERZENIO [Suspect]
     Active Substance: ABEMACICLIB
     Indication: Breast cancer female
     Route: 048
  2. LISINOPRIL [Concomitant]
     Active Substance: LISINOPRIL
  3. TAMOXIFEN [Concomitant]
     Active Substance: TAMOXIFEN

REACTIONS (1)
  - Therapy interrupted [None]
